FAERS Safety Report 7475508-5 (Version None)
Quarter: 2011Q2

REPORT INFORMATION
  Report Type: 
  Country: None (occurrence: None)
  Receive Date: 20110512
  Receipt Date: 20110429
  Transmission Date: 20111010
  Serious: Yes (Disabling)
  Sender: FDA-Public Use
  Company Number: PHHY2011IT36908

PATIENT
  Sex: Female

DRUGS (5)
  1. MEDROL [Concomitant]
     Dosage: 16 MG, UNK
  2. NERIXIA [Suspect]
     Indication: RHEUMATOID ARTHRITIS
     Dates: start: 20040101, end: 20100401
  3. NATECAL D [Concomitant]
  4. ZOMETA [Suspect]
     Indication: RHEUMATOID ARTHRITIS
     Route: 042
     Dates: start: 20090201, end: 20091101
  5. ARAVA [Concomitant]
     Dosage: 20 MG, UNK

REACTIONS (1)
  - OSTEONECROSIS OF JAW [None]
